FAERS Safety Report 13853480 (Version 1)
Quarter: 2017Q3

REPORT INFORMATION
  Report Type: Spontaneous
  Country: US (occurrence: US)
  Receive Date: 20170809
  Receipt Date: 20170809
  Transmission Date: 20171127
  Serious: Yes (Hospitalization)
  Sender: FDA-Public Use
  Company Number: None

PATIENT
  Age: 54 Year
  Sex: Male
  Weight: 152.4 kg

DRUGS (15)
  1. FLUCONAZOLE. [Concomitant]
     Active Substance: FLUCONAZOLE
  2. DECITABINE. [Suspect]
     Active Substance: DECITABINE
     Indication: MYELODYSPLASTIC SYNDROME
     Dosage: 57 MG, D1-10 Q MONTH, IV
     Route: 042
     Dates: start: 20170331, end: 20170721
  3. CANAKINUMAB [Concomitant]
     Active Substance: CANAKINUMAB
  4. LOVENOX [Concomitant]
     Active Substance: ENOXAPARIN SODIUM
  5. PREDNISONE. [Concomitant]
     Active Substance: PREDNISONE
  6. INSULIN LISPRO [Concomitant]
     Active Substance: INSULIN LISPRO
  7. CIPROFLOXACIN. [Concomitant]
     Active Substance: CIPROFLOXACIN
  8. OXYCODONE [Concomitant]
     Active Substance: OXYCODONE
  9. INSULINE GLARGINE [Concomitant]
     Active Substance: INSULIN GLARGINE
  10. GABAPENTIN. [Concomitant]
     Active Substance: GABAPENTIN
  11. ACYCLOVIR. [Concomitant]
     Active Substance: ACYCLOVIR
  12. OMEPRAZOLE. [Concomitant]
     Active Substance: OMEPRAZOLE
  13. TAMSULOSIN [Concomitant]
     Active Substance: TAMSULOSIN
  14. DAPTOMYCIN. [Concomitant]
     Active Substance: DAPTOMYCIN
  15. POSACONAZOLE [Concomitant]
     Active Substance: POSACONAZOLE

REACTIONS (6)
  - Headache [None]
  - Diarrhoea [None]
  - Fatigue [None]
  - Nausea [None]
  - Malaise [None]
  - Pyrexia [None]

NARRATIVE: CASE EVENT DATE: 20170804
